FAERS Safety Report 4377019-2 (Version None)
Quarter: 2004Q2

REPORT INFORMATION
  Report Type: 
  Country: None (occurrence: None)
  Receive Date: 20040614
  Receipt Date: 20040416
  Transmission Date: 20050107
  Serious: Yes (Disabling)
  Sender: FDA-Public Use
  Company Number: SE-GLAXOSMITHKLINE-B0330440A

PATIENT
  Sex: Female

DRUGS (3)
  1. SEROXAT [Suspect]
     Indication: DEPRESSION
     Dosage: 20MG PER DAY
     Route: 048
     Dates: start: 19990101, end: 20020312
  2. ZOLOFT [Concomitant]
     Dosage: 50MG PER DAY
  3. PREMELLE [Concomitant]

REACTIONS (15)
  - DYSKINESIA [None]
  - DYSPHAGIA [None]
  - DYSTONIA [None]
  - EATING DISORDER [None]
  - HEADACHE [None]
  - INFLUENZA LIKE ILLNESS [None]
  - MASTICATION DISORDER [None]
  - PAIN [None]
  - PAIN IN JAW [None]
  - PHARYNGOLARYNGEAL PAIN [None]
  - PYREXIA [None]
  - SPEECH DISORDER [None]
  - TONGUE DISORDER [None]
  - TRISMUS [None]
  - UPPER RESPIRATORY TRACT INFECTION [None]
